FAERS Safety Report 25723645 (Version 1)
Quarter: 2025Q3

REPORT INFORMATION
  Report Type: Spontaneous
  Country: CN (occurrence: CN)
  Receive Date: 20250825
  Receipt Date: 20250825
  Transmission Date: 20251021
  Serious: Yes (Other)
  Sender: MERCK SHARP & DOHME LLC
  Company Number: CN-009507513-2320997

PATIENT
  Age: 84 Year
  Sex: Male
  Weight: 73.5 kg

DRUGS (2)
  1. INVANZ [Suspect]
     Active Substance: ERTAPENEM SODIUM
     Indication: Cholelithiasis
     Route: 041
     Dates: start: 20250620, end: 20250622
  2. INVANZ [Suspect]
     Active Substance: ERTAPENEM SODIUM
     Indication: Cholelithiasis
     Route: 041
     Dates: start: 20250622, end: 20250622

REACTIONS (2)
  - Toxic encephalopathy [Recovering/Resolving]
  - Disorganised speech [Recovering/Resolving]

NARRATIVE: CASE EVENT DATE: 20250622
